FAERS Safety Report 7794432-1 (Version None)
Quarter: 2011Q4

REPORT INFORMATION
  Report Type: 
  Country: None (occurrence: None)
  Receive Date: 20111004
  Receipt Date: 20111004
  Transmission Date: 20120403
  Serious: No
  Sender: FDA-Public Use
  Company Number: None

PATIENT
  Age: 54 Year
  Sex: Female
  Weight: 90.718 kg

DRUGS (1)
  1. PIN-X [Suspect]
     Indication: HELMINTHIC INFECTION
     Dosage: 4 TEASPOONS
     Route: 048
     Dates: start: 20111002, end: 20111002

REACTIONS (2)
  - INCORRECT DOSE ADMINISTERED [None]
  - LIQUID PRODUCT PHYSICAL ISSUE [None]
